FAERS Safety Report 11750281 (Version 1)
Quarter: 2015Q4

REPORT INFORMATION
  Report Type: Spontaneous
  Country: US (occurrence: US)
  Receive Date: 20151118
  Receipt Date: 20151118
  Transmission Date: 20160304
  Serious: Yes (Other)
  Sender: FDA-Public Use
  Company Number: US-PFIZER INC-2015388661

PATIENT
  Age: 25 Year
  Sex: Female
  Weight: 73 kg

DRUGS (3)
  1. ZOLOFT [Suspect]
     Active Substance: SERTRALINE HYDROCHLORIDE
     Indication: DEPRESSION
     Dosage: UNK, 1X/DAY
     Dates: start: 201502
  2. ZOLOFT [Suspect]
     Active Substance: SERTRALINE HYDROCHLORIDE
     Indication: BIPOLAR DISORDER
  3. ORTHOTRI [Concomitant]
     Indication: CONTRACEPTION
     Dosage: UNK, CYCLIC (TAKE FOR THREE WEEKS AND A WEEK OFF)

REACTIONS (6)
  - Abasia [Not Recovered/Not Resolved]
  - Drug tolerance increased [Unknown]
  - Bone pain [Not Recovered/Not Resolved]
  - Pain in extremity [Unknown]
  - Mania [Unknown]
  - Drug effect incomplete [Unknown]

NARRATIVE: CASE EVENT DATE: 201508
